FAERS Safety Report 15355682 (Version 1)
Quarter: 2018Q3

REPORT INFORMATION
  Report Type: Report from Study
  Country: US (occurrence: US)
  Receive Date: 20180906
  Receipt Date: 20180906
  Transmission Date: 20181010
  Serious: Yes (Hospitalization, Other)
  Sender: FDA-Public Use
  Company Number: US-TESARO, INC.-US-2018TSO04137

PATIENT
  Sex: Female

DRUGS (2)
  1. ZEJULA [Suspect]
     Active Substance: NIRAPARIB
     Dosage: 100 MG, QD
     Route: 048
     Dates: start: 20180817
  2. ZEJULA [Suspect]
     Active Substance: NIRAPARIB
     Indication: METASTATIC NEOPLASM
     Dosage: 300 MG, QD
     Route: 048
     Dates: start: 201805, end: 20180806

REACTIONS (5)
  - Renal disorder [Not Recovered/Not Resolved]
  - Appendicitis [Unknown]
  - Fatigue [Not Recovered/Not Resolved]
  - Blood creatinine increased [Not Recovered/Not Resolved]
  - Product use in unapproved indication [Not Recovered/Not Resolved]
